FAERS Safety Report 15028471 (Version 3)
Quarter: 2018Q3

REPORT INFORMATION
  Report Type: Report from Study
  Country: DE (occurrence: DE)
  Receive Date: 20180619
  Receipt Date: 20180914
  Transmission Date: 20181010
  Serious: Yes (Hospitalization, Other)
  Sender: FDA-Public Use
  Company Number: DE-GLAXOSMITHKLINE-DE2018103624

PATIENT
  Age: 68 Year
  Sex: Female
  Weight: 49 kg

DRUGS (101)
  1. FOLINIC ACID [Suspect]
     Active Substance: LEUCOVORIN
     Dosage: 636 MG, UNK
     Route: 042
     Dates: start: 20170427, end: 20170427
  2. FOLINIC ACID [Suspect]
     Active Substance: LEUCOVORIN
     Dosage: 636 MG, UNK
     Route: 042
     Dates: start: 20171101, end: 20171101
  3. FOLINIC ACID [Suspect]
     Active Substance: LEUCOVORIN
     Dosage: 636 MG, UNK
     Route: 042
     Dates: start: 20171114, end: 20171114
  4. FOLINIC ACID [Suspect]
     Active Substance: LEUCOVORIN
     Dosage: 636 MG, UNK
     Route: 042
     Dates: start: 20180405, end: 20180405
  5. OXALIPLATIN. [Suspect]
     Active Substance: OXALIPLATIN
     Dosage: 135 MG, UNK
     Route: 042
     Dates: start: 20170511, end: 20170511
  6. PERFALGAN [Suspect]
     Active Substance: ACETAMINOPHEN
     Indication: PRODUCT USED FOR UNKNOWN INDICATION
     Dosage: UNK UNK, UNK
     Route: 016
  7. FLUOROURACIL. [Suspect]
     Active Substance: FLUOROURACIL
     Indication: ADENOCARCINOMA GASTRIC
     Dosage: 3816 UNK
     Route: 042
     Dates: start: 20170613, end: 20170615
  8. FLUOROURACIL. [Suspect]
     Active Substance: FLUOROURACIL
     Dosage: 3816 UNK
     Route: 042
     Dates: start: 20170711, end: 20170713
  9. FLUOROURACIL. [Suspect]
     Active Substance: FLUOROURACIL
     Dosage: 3816 UNK
     Route: 042
     Dates: start: 20170302, end: 20170304
  10. FLUOROURACIL. [Suspect]
     Active Substance: FLUOROURACIL
     Dosage: 636 UNK
     Route: 042
     Dates: start: 20170413, end: 20170413
  11. FLUOROURACIL. [Suspect]
     Active Substance: FLUOROURACIL
     Dosage: 636 UNK
     Route: 042
     Dates: start: 20170302, end: 20170302
  12. FLUOROURACIL. [Suspect]
     Active Substance: FLUOROURACIL
     Dosage: 636 UNK
     Route: 042
     Dates: start: 20170822, end: 20170822
  13. FLUOROURACIL. [Suspect]
     Active Substance: FLUOROURACIL
     Dosage: 636 UNK
     Route: 042
     Dates: start: 20170316, end: 20170316
  14. FLUOROURACIL. [Suspect]
     Active Substance: FLUOROURACIL
     Dosage: 3816 MG, UNK
     Route: 042
     Dates: start: 20180208, end: 20180210
  15. FLUOROURACIL. [Suspect]
     Active Substance: FLUOROURACIL
     Dosage: 636 UNK
     Route: 042
     Dates: start: 20180405, end: 20180405
  16. PANTOPRAZOLE [Concomitant]
     Active Substance: PANTOPRAZOLE
     Indication: PRODUCT USED FOR UNKNOWN INDICATION
     Dosage: UNK
     Route: 065
  17. METOCLOPRAMID [Concomitant]
     Active Substance: METOCLOPRAMIDE
     Indication: PRODUCT USED FOR UNKNOWN INDICATION
     Dosage: UNK
     Route: 065
  18. RINGERS SOLUTION [Concomitant]
     Active Substance: CALCIUM CHLORIDE\POTASSIUM CHLORIDE\SODIUM CHLORIDE
     Indication: PRODUCT USED FOR UNKNOWN INDICATION
     Dosage: UNK
     Route: 065
     Dates: start: 20180406, end: 20180406
  19. DICLOFENAC SODIUM. [Suspect]
     Active Substance: DICLOFENAC SODIUM
     Indication: PRODUCT USED FOR UNKNOWN INDICATION
     Dosage: UNK
     Route: 065
  20. FOLINIC ACID [Suspect]
     Active Substance: LEUCOVORIN
     Dosage: 636 MG, UNK
     Route: 042
     Dates: start: 20180322, end: 20180322
  21. OXALIPLATIN. [Suspect]
     Active Substance: OXALIPLATIN
     Indication: ADENOCARCINOMA GASTRIC
     Dosage: 135 MG, UNK
     Route: 042
     Dates: start: 20170302, end: 20170302
  22. OXALIPLATIN. [Suspect]
     Active Substance: OXALIPLATIN
     Dosage: 135 MG, UNK
     Route: 042
     Dates: start: 20170427, end: 20170427
  23. OXALIPLATIN. [Suspect]
     Active Substance: OXALIPLATIN
     Dosage: 135 MG, UNK
     Route: 042
     Dates: start: 20170613, end: 20170613
  24. TRAMAL [Suspect]
     Active Substance: TRAMADOL
     Indication: PRODUCT USED FOR UNKNOWN INDICATION
     Dosage: UNK UNK, UNK
     Route: 016
  25. FLUOROURACIL. [Suspect]
     Active Substance: FLUOROURACIL
     Dosage: 636 UNK
     Route: 042
     Dates: start: 20171114, end: 20171114
  26. FLUOROURACIL. [Suspect]
     Active Substance: FLUOROURACIL
     Dosage: 3816 UNK
     Route: 042
     Dates: start: 20171128, end: 20171130
  27. FLUOROURACIL. [Suspect]
     Active Substance: FLUOROURACIL
     Dosage: 3816 UNK
     Route: 042
     Dates: start: 20180308, end: 20180310
  28. FLUOROURACIL. [Suspect]
     Active Substance: FLUOROURACIL
     Dosage: 636 UNK
     Route: 042
     Dates: start: 20171128, end: 20171128
  29. FLUOROURACIL. [Suspect]
     Active Substance: FLUOROURACIL
     Dosage: 3816 UNK
     Route: 042
     Dates: start: 20171017, end: 20171019
  30. FLUOROURACIL. [Suspect]
     Active Substance: FLUOROURACIL
     Dosage: 636 UNK
     Route: 042
     Dates: start: 20171104, end: 20171104
  31. LAXANS [Concomitant]
     Indication: PRODUCT USED FOR UNKNOWN INDICATION
     Dosage: UNK
     Route: 016
  32. KREON [Concomitant]
     Active Substance: PANCRELIPASE
     Indication: PRODUCT USED FOR UNKNOWN INDICATION
     Dosage: UNK
     Route: 065
  33. FOLINIC ACID [Suspect]
     Active Substance: LEUCOVORIN
     Dosage: 636 MG, UNK
     Route: 042
     Dates: start: 20170711, end: 20170711
  34. FOLINIC ACID [Suspect]
     Active Substance: LEUCOVORIN
     Dosage: 636 MG, UNK
     Route: 042
     Dates: start: 20170822, end: 20170822
  35. FOLINIC ACID [Suspect]
     Active Substance: LEUCOVORIN
     Dosage: 636 MG, UNK
     Route: 042
     Dates: start: 20180308, end: 20180308
  36. FOLINIC ACID [Suspect]
     Active Substance: LEUCOVORIN
     Dosage: 636 MG, UNK
     Route: 042
     Dates: start: 20180222, end: 20180222
  37. OXALIPLATIN. [Suspect]
     Active Substance: OXALIPLATIN
     Dosage: 135 MG, UNK
     Route: 042
     Dates: start: 20170530, end: 20170530
  38. FLUOROURACIL. [Suspect]
     Active Substance: FLUOROURACIL
     Dosage: 636 UNK
     Route: 042
     Dates: start: 20170627, end: 20170627
  39. ADDEL N [Concomitant]
     Active Substance: UNSPECIFIED INGREDIENT
     Indication: PRODUCT USED FOR UNKNOWN INDICATION
     Dosage: UNK
     Route: 065
     Dates: start: 20180406, end: 20180406
  40. LYRICA [Concomitant]
     Active Substance: PREGABALIN
     Indication: PRODUCT USED FOR UNKNOWN INDICATION
     Dosage: UNK
     Route: 016
  41. SYMBICORT [Concomitant]
     Active Substance: BUDESONIDE\FORMOTEROL FUMARATE DIHYDRATE
     Indication: PRODUCT USED FOR UNKNOWN INDICATION
     Dosage: UNK
     Route: 016
  42. FOLINIC ACID [Suspect]
     Active Substance: LEUCOVORIN
     Dosage: 636 MG, UNK
     Route: 042
     Dates: start: 20170627, end: 20170627
  43. FOLINIC ACID [Suspect]
     Active Substance: LEUCOVORIN
     Dosage: 636 MG, UNK
     Route: 042
     Dates: start: 20170808, end: 20170808
  44. FOLINIC ACID [Suspect]
     Active Substance: LEUCOVORIN
     Dosage: 636 MG, UNK
     Route: 042
     Dates: start: 20180125, end: 20180125
  45. FOLINIC ACID [Suspect]
     Active Substance: LEUCOVORIN
     Dosage: 636 MG, UNK
     Route: 042
     Dates: start: 20180208, end: 20180208
  46. OXALIPLATIN. [Suspect]
     Active Substance: OXALIPLATIN
     Dosage: 135 MG, UNK
     Route: 042
     Dates: start: 20170627, end: 20170627
  47. FLUOROURACIL. [Suspect]
     Active Substance: FLUOROURACIL
     Dosage: 636 UNK
     Route: 042
     Dates: start: 20170302, end: 20170302
  48. FLUOROURACIL. [Suspect]
     Active Substance: FLUOROURACIL
     Dosage: 3816 UNK
     Route: 042
     Dates: start: 20171114, end: 20171116
  49. FLUOROURACIL. [Suspect]
     Active Substance: FLUOROURACIL
     Dosage: 3816 UNK
     Route: 042
     Dates: start: 20170330, end: 20170401
  50. FLUOROURACIL. [Suspect]
     Active Substance: FLUOROURACIL
     Dosage: 3816 UNK
     Route: 042
     Dates: start: 20180322, end: 20180324
  51. FLUOROURACIL. [Suspect]
     Active Substance: FLUOROURACIL
     Dosage: 636 UNK
     Route: 042
     Dates: start: 20170711, end: 20170711
  52. INNOHEP [Concomitant]
     Active Substance: TINZAPARIN SODIUM
     Indication: PRODUCT USED FOR UNKNOWN INDICATION
     Dosage: UNK
     Route: 065
  53. FENTANYL. [Concomitant]
     Active Substance: FENTANYL
     Indication: PRODUCT USED FOR UNKNOWN INDICATION
     Dosage: UNK
     Route: 016
  54. FOLINIC ACID [Suspect]
     Active Substance: LEUCOVORIN
     Dosage: 636 MG, UNK
     Route: 042
     Dates: start: 20170330, end: 20170330
  55. FOLINIC ACID [Suspect]
     Active Substance: LEUCOVORIN
     Dosage: 636 MG, UNK
     Route: 042
     Dates: start: 20170511, end: 20170511
  56. FOLINIC ACID [Suspect]
     Active Substance: LEUCOVORIN
     Dosage: 636 MG, UNK
     Route: 042
     Dates: start: 20171128, end: 20171128
  57. OXALIPLATIN. [Suspect]
     Active Substance: OXALIPLATIN
     Indication: ADENOCARCINOMA GASTRIC
     Dosage: 135 MG, UNK
     Route: 042
     Dates: start: 20170316, end: 20170316
  58. NOVAMINSULFON [Suspect]
     Active Substance: METAMIZOLE
     Indication: ABDOMINAL PAIN UPPER
     Dosage: UNK UNK, UNK
     Route: 042
  59. FLUOROURACIL. [Suspect]
     Active Substance: FLUOROURACIL
     Dosage: 636 UNK
     Route: 042
     Dates: start: 20170725, end: 20170725
  60. FLUOROURACIL. [Suspect]
     Active Substance: FLUOROURACIL
     Dosage: 3816 UNK
     Route: 042
     Dates: start: 20170919, end: 20170921
  61. FLUOROURACIL. [Suspect]
     Active Substance: FLUOROURACIL
     Dosage: 636 UNK
     Route: 042
     Dates: start: 20170613, end: 20170613
  62. FLUOROURACIL. [Suspect]
     Active Substance: FLUOROURACIL
     Dosage: 3816 UNK
     Route: 042
     Dates: start: 20180125, end: 20180127
  63. FOLINIC ACID [Suspect]
     Active Substance: LEUCOVORIN
     Dosage: 636 MG, UNK
     Route: 042
     Dates: start: 20170413, end: 20170413
  64. FOLINIC ACID [Suspect]
     Active Substance: LEUCOVORIN
     Dosage: 636 MG, UNK
     Route: 042
     Dates: start: 20170530, end: 20170530
  65. FOLINIC ACID [Suspect]
     Active Substance: LEUCOVORIN
     Dosage: 636 MG, UNK
     Route: 042
     Dates: start: 20170919, end: 20170919
  66. OXALIPLATIN. [Suspect]
     Active Substance: OXALIPLATIN
     Dosage: 135 MG, UNK
     Route: 042
     Dates: start: 20170725, end: 20170725
  67. FLUOROURACIL. [Suspect]
     Active Substance: FLUOROURACIL
     Dosage: 636 UNK
     Route: 042
     Dates: start: 20170808, end: 20170808
  68. FLUOROURACIL. [Suspect]
     Active Substance: FLUOROURACIL
     Dosage: 3816 UNK
     Route: 042
     Dates: start: 20171004, end: 20171006
  69. FLUOROURACIL. [Suspect]
     Active Substance: FLUOROURACIL
     Dosage: 636 UNK
     Route: 042
     Dates: start: 20171017, end: 20171017
  70. FLUOROURACIL. [Suspect]
     Active Substance: FLUOROURACIL
     Dosage: 636 UNK
     Route: 042
     Dates: start: 20170330, end: 20170330
  71. FLUOROURACIL. [Suspect]
     Active Substance: FLUOROURACIL
     Dosage: 636 UNK
     Route: 042
     Dates: start: 20180222, end: 20180222
  72. FLUOROURACIL. [Suspect]
     Active Substance: FLUOROURACIL
     Dosage: 3816 MG, UNK
     Route: 042
     Dates: start: 20180222, end: 20180224
  73. MAGNESIUM (MAGNESIUM SALT) [Concomitant]
     Active Substance: MAGNESIUM
     Indication: PRODUCT USED FOR UNKNOWN INDICATION
     Dosage: UNK
     Route: 065
  74. FOLINIC ACID [Suspect]
     Active Substance: LEUCOVORIN
     Dosage: 636 MG, UNK
     Route: 042
     Dates: start: 20170725, end: 20170725
  75. FOLINIC ACID [Suspect]
     Active Substance: LEUCOVORIN
     Dosage: 636 MG, UNK
     Route: 042
     Dates: start: 20171017, end: 20171017
  76. FOLINIC ACID [Suspect]
     Active Substance: LEUCOVORIN
     Dosage: 636 MG, UNK
     Route: 042
     Dates: start: 20171212, end: 20171212
  77. OXALIPLATIN. [Suspect]
     Active Substance: OXALIPLATIN
     Dosage: 135 MG, UNK
     Route: 042
     Dates: start: 20170330, end: 20170330
  78. OXALIPLATIN. [Suspect]
     Active Substance: OXALIPLATIN
     Dosage: 135 MG, UNK
     Route: 042
     Dates: start: 20170711, end: 20170711
  79. CLEXANE [Suspect]
     Active Substance: ENOXAPARIN SODIUM
     Indication: PRODUCT USED FOR UNKNOWN INDICATION
     Dosage: UNK UNK, UNK
     Route: 016
  80. FLUOROURACIL. [Suspect]
     Active Substance: FLUOROURACIL
     Dosage: 3816 UNK
     Route: 042
     Dates: start: 20170511, end: 20170513
  81. FLUOROURACIL. [Suspect]
     Active Substance: FLUOROURACIL
     Dosage: 3816 UNK
     Route: 042
     Dates: start: 20171101, end: 20171103
  82. FLUOROURACIL. [Suspect]
     Active Substance: FLUOROURACIL
     Dosage: 636 UNK
     Route: 042
     Dates: start: 20170511, end: 20170511
  83. FLUOROURACIL. [Suspect]
     Active Substance: FLUOROURACIL
     Dosage: 3816 UNK
     Route: 042
     Dates: start: 20170808, end: 20170810
  84. NEUROTRAT [Concomitant]
     Indication: PRODUCT USED FOR UNKNOWN INDICATION
     Dosage: UNK
     Route: 065
  85. FOLINIC ACID [Suspect]
     Active Substance: LEUCOVORIN
     Indication: ADENOCARCINOMA GASTRIC
     Dosage: 636 MG, UNK
     Route: 042
     Dates: start: 20170302, end: 20170302
  86. FOLINIC ACID [Suspect]
     Active Substance: LEUCOVORIN
     Indication: ADENOCARCINOMA GASTRIC
     Dosage: 636 MG, UNK
     Route: 042
     Dates: start: 20170316, end: 20170316
  87. FOLINIC ACID [Suspect]
     Active Substance: LEUCOVORIN
     Dosage: 636 MG, UNK
     Route: 042
     Dates: start: 20171004, end: 20171004
  88. OXALIPLATIN. [Suspect]
     Active Substance: OXALIPLATIN
     Dosage: 135 MG, UNK
     Route: 042
     Dates: start: 20170413, end: 20170413
  89. FLUOROURACIL. [Suspect]
     Active Substance: FLUOROURACIL
     Indication: ADENOCARCINOMA GASTRIC
     Dosage: 636 UNK
     Route: 042
     Dates: start: 20171101, end: 20171101
  90. FLUOROURACIL. [Suspect]
     Active Substance: FLUOROURACIL
     Dosage: 3816 UNK
     Route: 042
     Dates: start: 20170627, end: 20170629
  91. FLUOROURACIL. [Suspect]
     Active Substance: FLUOROURACIL
     Dosage: 3816 UNK
     Route: 042
     Dates: start: 20170822, end: 20170824
  92. FLUOROURACIL. [Suspect]
     Active Substance: FLUOROURACIL
     Dosage: 3816 UNK
     Route: 042
     Dates: start: 20171212, end: 20171214
  93. FLUOROURACIL. [Suspect]
     Active Substance: FLUOROURACIL
     Dosage: 3816 UNK
     Route: 042
     Dates: start: 20170725, end: 20170727
  94. FLUOROURACIL. [Suspect]
     Active Substance: FLUOROURACIL
     Dosage: 636 UNK
     Route: 042
     Dates: start: 20170427, end: 20170427
  95. FLUOROURACIL. [Suspect]
     Active Substance: FLUOROURACIL
     Dosage: 636 UNK
     Route: 042
     Dates: start: 20170919, end: 20170919
  96. FLUOROURACIL. [Suspect]
     Active Substance: FLUOROURACIL
     Dosage: 3816 UNK
     Route: 042
     Dates: start: 20180405, end: 20180407
  97. MOVICOL [Concomitant]
     Active Substance: POLYETHYLENE GLYCOL 3350\POTASSIUM CHLORIDE\SODIUM BICARBONATE\SODIUM CHLORIDE
     Indication: PRODUCT USED FOR UNKNOWN INDICATION
     Dosage: UNK
     Route: 016
  98. DUROGESIC SMAT [Concomitant]
     Active Substance: FENTANYL
     Indication: PRODUCT USED FOR UNKNOWN INDICATION
     Dosage: UNK
     Route: 016
  99. XARELTO [Concomitant]
     Active Substance: RIVAROXABAN
     Indication: PRODUCT USED FOR UNKNOWN INDICATION
     Dosage: UNK
     Route: 016
  100. ONDANSETRON [Concomitant]
     Active Substance: ONDANSETRON
     Indication: PRODUCT USED FOR UNKNOWN INDICATION
     Dosage: UNK
     Route: 065
  101. CENTRUM A TO ZINC [Concomitant]
     Indication: PRODUCT USED FOR UNKNOWN INDICATION
     Dosage: UNK
     Route: 016

REACTIONS (1)
  - Hip fracture [Recovered/Resolved]

NARRATIVE: CASE EVENT DATE: 20180506
